FAERS Safety Report 8303646-3 (Version None)
Quarter: 2012Q2

REPORT INFORMATION
  Report Type: 
  Country: None (occurrence: None)
  Receive Date: 20120423
  Receipt Date: 20120418
  Transmission Date: 20120825
  Serious: Yes (Other)
  Sender: FDA-Public Use
  Company Number: US-PFIZER INC-2012051120

PATIENT
  Sex: Female

DRUGS (11)
  1. LASIX [Concomitant]
     Dosage: 80 MG, UNK
  2. LEVOXYL [Concomitant]
     Dosage: 200 MG, 1X/DAY
  3. WARFARIN [Concomitant]
     Dosage: 2 MG, (2 MG / DAY 5)
  4. FOLIC ACID [Concomitant]
     Dosage: UNK
  5. DIOVAN [Concomitant]
     Dosage: 160 MG, 1X/DAY
  6. VYTORIN [Concomitant]
     Dosage: (10/20 QD)
  7. RANEXA [Concomitant]
     Dosage: 500 MG, 2X/DAY
  8. CARVEDILOL [Concomitant]
     Dosage: (6.25 BID)
  9. AMIODARONE HCL [Suspect]
     Indication: VENTRICULAR TACHYCARDIA
     Dosage: 200 MG, 1X/DAY
     Route: 048
     Dates: start: 20110901
  10. VITAMIN D [Concomitant]
     Dosage: UNK
  11. PRILOSEC [Concomitant]
     Dosage: (OTC 1-2/DAY)

REACTIONS (9)
  - GASTROINTESTINAL ULCER HAEMORRHAGE [None]
  - VOMITING [None]
  - NAUSEA [None]
  - RENAL IMPAIRMENT [None]
  - RENAL DISORDER [None]
  - GAIT DISTURBANCE [None]
  - ASTHENIA [None]
  - DIARRHOEA [None]
  - MALAISE [None]
